FAERS Safety Report 23339670 (Version 1)
Quarter: 2023Q4

REPORT INFORMATION
  Report Type: Spontaneous
  Country: US (occurrence: US)
  Receive Date: 20231226
  Receipt Date: 20231226
  Transmission Date: 20240109
  Serious: Yes (Hospitalization, Other)
  Sender: FDA-Public Use
  Company Number: US-BAUSCH-BL-2023-019088

PATIENT
  Age: 30 Year
  Sex: Male

DRUGS (5)
  1. BUPROPION [Suspect]
     Active Substance: BUPROPION
     Indication: Product used for unknown indication
     Dosage: 300 MG DAILY AS PRESCRIBED PLUS 35 PILLS BY SNORTING FOUR 150 MG (600MG)/DAY (TOTAL 900 MG DAILY)
     Route: 065
     Dates: end: 202112
  2. BUPROPION [Suspect]
     Active Substance: BUPROPION
     Dosage: 35 PILLS BY SNORTING FOUR 150 MG (600MG) PILLS PER DAY (TOTAL 900 MG DAILY)
     Route: 045
     Dates: end: 202112
  3. COCAINE [Concomitant]
     Active Substance: COCAINE
     Indication: Attention deficit hyperactivity disorder
     Route: 065
  4. AMPHETAMINE [Concomitant]
     Active Substance: AMPHETAMINE
     Indication: Attention deficit hyperactivity disorder
     Route: 065
  5. METHAMPHETAMINE [Concomitant]
     Active Substance: METHAMPHETAMINE
     Indication: Attention deficit hyperactivity disorder
     Route: 065

REACTIONS (4)
  - Mania [Recovered/Resolved]
  - Overdose [Unknown]
  - Intentional product misuse [Unknown]
  - Incorrect route of product administration [Unknown]

NARRATIVE: CASE EVENT DATE: 20211201
